FAERS Safety Report 9259573 (Version 3)
Quarter: 2013Q4

REPORT INFORMATION
  Report Type: Spontaneous
  Country: US (occurrence: US)
  Receive Date: 20130429
  Receipt Date: 20131105
  Transmission Date: 20140711
  Serious: Yes (Hospitalization, Disabling, Other)
  Sender: FDA-Public Use
  Company Number: US-ASTRAZENECA-2013SE27782

PATIENT
  Age: 51 Year
  Sex: Female
  Weight: 68 kg

DRUGS (21)
  1. NEXIUM [Suspect]
     Indication: GASTROOESOPHAGEAL REFLUX DISEASE
     Dosage: ONCE A DAY
     Route: 048
  2. NEXIUM [Suspect]
     Indication: GASTROOESOPHAGEAL REFLUX DISEASE
     Route: 048
     Dates: start: 2004, end: 2012
  3. NEXIUM [Suspect]
     Indication: GASTROOESOPHAGEAL REFLUX DISEASE
     Route: 048
     Dates: start: 20081017
  4. PRILOSEC [Suspect]
     Indication: GASTROOESOPHAGEAL REFLUX DISEASE
     Route: 048
  5. PRILOSEC [Suspect]
     Indication: GASTROOESOPHAGEAL REFLUX DISEASE
     Route: 048
     Dates: start: 20120504
  6. PREVACID [Concomitant]
     Indication: GASTROOESOPHAGEAL REFLUX DISEASE
     Dates: start: 1995
  7. ZANTAC [Concomitant]
  8. TUMS [Concomitant]
  9. ROLAIDS [Concomitant]
  10. MYLANTA [Concomitant]
  11. MILK OF MAGNESIA [Concomitant]
  12. PEPTO-BISMOL [Concomitant]
  13. PLAQUENIL [Concomitant]
     Dates: start: 20101008
  14. VITAMIN D3 [Concomitant]
  15. ARIMIDEX [Concomitant]
  16. AMITRIPTYLINE [Concomitant]
  17. ALLOPURINOL [Concomitant]
  18. SERTRALINE [Concomitant]
  19. CIPROFLOXACIN [Concomitant]
     Dates: start: 20080930
  20. MELOXICAM [Concomitant]
     Dates: start: 20080930
  21. LISINOP/HCTZ [Concomitant]
     Dosage: 20-25
     Dates: start: 20081008

REACTIONS (12)
  - Glaucoma [Unknown]
  - Systemic lupus erythematosus [Unknown]
  - Breast cancer [Unknown]
  - Osteoporosis [Unknown]
  - Radius fracture [Unknown]
  - Bone disorder [Unknown]
  - Lower limb fracture [Unknown]
  - Upper limb fracture [Unknown]
  - Foot fracture [Unknown]
  - Arthritis [Unknown]
  - Fall [Unknown]
  - Compression fracture [Unknown]
